FAERS Safety Report 4630658-3 (Version None)
Quarter: 2005Q2

REPORT INFORMATION
  Report Type: 
  Country: None (occurrence: None)
  Receive Date: 20050406
  Receipt Date: 20050325
  Transmission Date: 20051028
  Serious: Yes (Hospitalization, Other)
  Sender: FDA-Public Use
  Company Number: KII-2005-0015648

PATIENT
  Age: 42 Year
  Sex: Male

DRUGS (7)
  1. OXYCODONE HCL [Suspect]
     Indication: DRUG USE FOR UNKNOWN INDICATION
     Dosage: SEE TEXT, ORAL
     Route: 048
  2. METOPROLOL TARTRATE [Suspect]
     Indication: DRUG USE FOR UNKNOWN INDICATION
     Dosage: SEE TEXT, ORAL
     Route: 048
  3. SSRI ( ) [Suspect]
     Indication: DRUG USE FOR UNKNOWN INDICATION
     Dosage: SEE TEXT, ORAL
     Route: 048
  4. NAPROXEN [Suspect]
     Indication: DRUG USE FOR UNKNOWN INDICATION
     Dosage: SEE TEXT, ORAL
     Route: 048
  5. HYDROXYZINE [Suspect]
     Indication: DRUG USE FOR UNKNOWN INDICATION
     Dosage: SEE TEXT, ORAL
     Route: 048
  6. HYDROCODONE W/ACETAMINOPHEN (PARACETAMOL, HYDROCODONE BITARTRATE) [Suspect]
     Indication: DRUG USE FOR UNKNOWN INDICATION
     Dosage: SEE TEXT, ORAL
     Route: 048
  7. TRICYCLIC ANTIDEPRESSANTS ( ) [Suspect]
     Indication: DRUG USE FOR UNKNOWN INDICATION

REACTIONS (8)
  - DEPRESSION [None]
  - FLAT AFFECT [None]
  - INTENTIONAL MISUSE [None]
  - INTENTIONAL SELF-INJURY [None]
  - LETHARGY [None]
  - SINUS BRADYCARDIA [None]
  - SOMNOLENCE [None]
  - VOMITING [None]
